FAERS Safety Report 15993975 (Version 3)
Quarter: 2019Q2

REPORT INFORMATION
  Report Type: Spontaneous
  Country: US (occurrence: US)
  Receive Date: 20190222
  Receipt Date: 20190611
  Transmission Date: 20190711
  Serious: Yes (Other)
  Sender: FDA-Public Use
  Company Number: US-GLAXOSMITHKLINE-US2019GSK028410

PATIENT
  Sex: Female
  Weight: 32.65 kg

DRUGS (1)
  1. LAMOTRIGINE. [Suspect]
     Active Substance: LAMOTRIGINE
     Indication: SEIZURE
     Dosage: 50 MG, BID
     Route: 048
     Dates: start: 20181212, end: 20190423

REACTIONS (2)
  - Growth hormone deficiency [Unknown]
  - Adverse drug reaction [Unknown]
